FAERS Safety Report 6825584-5 (Version None)
Quarter: 2010Q3

REPORT INFORMATION
  Report Type: 
  Country: None (occurrence: None)
  Receive Date: 20100708
  Receipt Date: 20070305
  Transmission Date: 20110219
  Serious: No
  Sender: FDA-Public Use
  Company Number: US-PFIZER INC-2007001109

PATIENT
  Sex: Female
  Weight: 74.39 kg

DRUGS (7)
  1. CHANTIX [Suspect]
     Indication: SMOKING CESSATION THERAPY
     Dates: start: 20061025, end: 20061101
  2. CHANTIX [Suspect]
     Indication: DEPENDENCE
  3. NORVASC [Concomitant]
     Indication: HYPERTENSION
  4. ATENOLOL [Concomitant]
     Indication: HYPERTENSION
  5. PREVACID [Concomitant]
  6. KLONOPIN [Concomitant]
     Indication: PAIN
  7. CALCIUM WITH VITAMIN D [Concomitant]

REACTIONS (3)
  - FATIGUE [None]
  - HYPOTENSION [None]
  - NAUSEA [None]
